FAERS Safety Report 25534221 (Version 1)
Quarter: 2025Q3

REPORT INFORMATION
  Report Type: Spontaneous
  Country: BR (occurrence: BR)
  Receive Date: 20250709
  Receipt Date: 20250709
  Transmission Date: 20251021
  Serious: Yes (Other)
  Sender: AMGEN
  Company Number: BR-AMGEN-BRASP2025130562

PATIENT
  Age: 43 Year
  Sex: Female

DRUGS (14)
  1. RITUXIMAB [Suspect]
     Active Substance: RITUXIMAB
     Indication: Interstitial lung disease
     Route: 065
     Dates: start: 202208, end: 202309
  2. METHOTREXATE [Concomitant]
     Active Substance: METHOTREXATE
  3. HYDROXYCHLOROQUINE [Concomitant]
     Active Substance: HYDROXYCHLOROQUINE
  4. PREDNISONE [Concomitant]
     Active Substance: PREDNISONE
     Indication: Lung disorder
     Dosage: 10 MILLIGRAM, QD
     Dates: start: 2012
  5. PREDNISONE [Concomitant]
     Active Substance: PREDNISONE
     Dates: start: 201802
  6. PREDNISONE [Concomitant]
     Active Substance: PREDNISONE
     Dates: start: 202008, end: 202205
  7. PREDNISONE [Concomitant]
     Active Substance: PREDNISONE
     Dosage: 40 UNK
  8. AZATHIOPRINE [Concomitant]
     Active Substance: AZATHIOPRINE
     Dates: start: 201212, end: 201609
  9. BENZNIDAZOLE [Concomitant]
     Active Substance: BENZNIDAZOLE
  10. METHYLPREDNISOLONE [Concomitant]
     Active Substance: METHYLPREDNISOLONE
     Indication: Lung disorder
  11. TOCILIZUMAB [Concomitant]
     Active Substance: TOCILIZUMAB
     Dates: start: 2011
  12. TOCILIZUMAB [Concomitant]
     Active Substance: TOCILIZUMAB
     Dates: start: 201505, end: 201602
  13. TOCILIZUMAB [Concomitant]
     Active Substance: TOCILIZUMAB
     Dates: start: 201903, end: 202205
  14. TOCILIZUMAB [Concomitant]
     Active Substance: TOCILIZUMAB
     Dates: start: 202003, end: 202202

REACTIONS (5)
  - Hepatotoxicity [Unknown]
  - Pulmonary amyloidosis [Unknown]
  - Renal amyloidosis [Unknown]
  - Renal failure [Unknown]
  - Off label use [Unknown]

NARRATIVE: CASE EVENT DATE: 20220101
